FAERS Safety Report 25268498 (Version 1)
Quarter: 2025Q2

REPORT INFORMATION
  Report Type: Spontaneous
  Country: AU (occurrence: AU)
  Receive Date: 20250505
  Receipt Date: 20250505
  Transmission Date: 20250716
  Serious: Yes (Other)
  Sender: ACCORD
  Company Number: AU-MLMSERVICE-20250417-PI482868-00082-1

PATIENT
  Sex: Female

DRUGS (6)
  1. CARBOPLATIN [Suspect]
     Active Substance: CARBOPLATIN
     Indication: Endometrial cancer stage III
  2. PACLITAXEL [Suspect]
     Active Substance: PACLITAXEL
     Indication: Endometrial cancer stage III
  3. PACLITAXEL [Suspect]
     Active Substance: PACLITAXEL
     Indication: Chemotherapy
  4. PACLITAXEL [Suspect]
     Active Substance: PACLITAXEL
     Indication: Disease recurrence
  5. CARBOPLATIN [Suspect]
     Active Substance: CARBOPLATIN
     Indication: Disease recurrence
  6. CARBOPLATIN [Suspect]
     Active Substance: CARBOPLATIN
     Indication: Chemotherapy

REACTIONS (4)
  - Impaired healing [Unknown]
  - Urinary tract infection [Unknown]
  - Abdominal sepsis [Unknown]
  - Off label use [Unknown]
